FAERS Safety Report 12746221 (Version 1)
Quarter: 2016Q3

REPORT INFORMATION
  Report Type: Spontaneous
  Country: US (occurrence: US)
  Receive Date: 20160914
  Receipt Date: 20160914
  Transmission Date: 20161109
  Serious: No
  Sender: FDA-Public Use
  Company Number: None

PATIENT
  Age: 39 Year
  Sex: Female
  Weight: 67.5 kg

DRUGS (2)
  1. HYDROCODONE /ACETAMINOPHEN 5-325 [Suspect]
     Active Substance: ACETAMINOPHEN\HYDROCODONE
     Indication: ENDOMETRIOSIS
     Route: 048
     Dates: start: 20160805
  2. HYDROCODONE /ACETAMINOPHEN 5-325 [Suspect]
     Active Substance: ACETAMINOPHEN\HYDROCODONE
     Indication: MUSCLE SPASMS
     Route: 048
     Dates: start: 20160805

REACTIONS (3)
  - Headache [None]
  - Drug ineffective [None]
  - Product quality issue [None]

NARRATIVE: CASE EVENT DATE: 20160812
